FAERS Safety Report 12954717 (Version 1)
Quarter: 2016Q4

REPORT INFORMATION
  Report Type: Spontaneous
  Country: US (occurrence: US)
  Receive Date: 20161117
  Receipt Date: 20161117
  Transmission Date: 20170207
  Serious: No
  Sender: FDA-Public Use
  Company Number: None

PATIENT
  Age: 77 Year
  Sex: Female
  Weight: 36.32 kg

DRUGS (1)
  1. LONSURF [Suspect]
     Active Substance: TIPIRACIL HYDROCHLORIDE\TRIFLURIDINE
     Indication: NEOPLASM MALIGNANT
     Dosage: 20MG (2TABS BID) DAILY 1-5,8-12 ORAL
     Route: 048
     Dates: start: 20160923

REACTIONS (3)
  - Diarrhoea [None]
  - Headache [None]
  - Vomiting [None]
